FAERS Safety Report 6528488-0 (Version None)
Quarter: 2009Q4

REPORT INFORMATION
  Report Type: 
  Country: None (occurrence: None)
  Receive Date: 20091222
  Receipt Date: 20091015
  Transmission Date: 20100525
  Serious: No
  Sender: FDA-Public Use
  Company Number: ALL1-2009-02530

PATIENT
  Sex: Female

DRUGS (1)
  1. VYVANSE [Suspect]
     Dosage: MG, ORAL
     Route: 048
     Dates: start: 20090601

REACTIONS (2)
  - DRUG DIVERSION [None]
  - THERAPEUTIC RESPONSE UNEXPECTED [None]
